FAERS Safety Report 8394252-3 (Version None)
Quarter: 2012Q2

REPORT INFORMATION
  Report Type: 
  Country: None (occurrence: None)
  Receive Date: 20120530
  Receipt Date: 20120522
  Transmission Date: 20120825
  Serious: Yes (Hospitalization)
  Sender: FDA-Public Use
  Company Number: US-BAYER-2011-123558

PATIENT
  Age: 19 Year
  Sex: Female
  Weight: 122.45 kg

DRUGS (10)
  1. AUGMENTIN [Concomitant]
     Dosage: 875 MG, BID
     Route: 048
     Dates: start: 20060102
  2. ROBITUSSIN AC [CODEINE PHOSPHATE,GUAIFENESIN,PHENIRAMINE MALEATE] [Concomitant]
     Indication: COUGH
     Dosage: UNK
     Route: 048
     Dates: start: 20060102
  3. METHYLIN [Concomitant]
     Dosage: 20 MG, QD
     Route: 048
  4. CHERATUSSIN AC [Concomitant]
     Indication: COUGH
     Dosage: 1 TEASPOON Q 6
     Route: 048
  5. YASMIN [Suspect]
     Indication: DYSFUNCTIONAL UTERINE BLEEDING
     Dosage: UNK
     Dates: start: 20030301, end: 20060101
  6. DURATUSS [Concomitant]
     Indication: PULMONARY CONGESTION
     Dosage: 1 BID
     Route: 048
     Dates: start: 20060102
  7. OXYCODONE HCL AND ACETAMINOPHEN [Concomitant]
     Dosage: 5MG-325 MG
     Route: 048
  8. YASMIN [Suspect]
     Indication: HORMONE LEVEL ABNORMAL
     Dosage: UNK
     Dates: start: 19990101, end: 20051201
  9. PERCOCET [Concomitant]
     Indication: PAIN
     Route: 048
  10. IBUPROFEN [Concomitant]
     Dosage: 800 MG, TID
     Route: 048

REACTIONS (6)
  - PAIN [None]
  - ANXIETY [None]
  - PULMONARY EMBOLISM [None]
  - EMOTIONAL DISTRESS [None]
  - INJURY [None]
  - GENERAL PHYSICAL HEALTH DETERIORATION [None]
